FAERS Safety Report 5263583-8 (Version None)
Quarter: 2007Q1

REPORT INFORMATION
  Report Type: 
  Country: None (occurrence: None)
  Receive Date: 20061213
  Receipt Date: 20040817
  Transmission Date: 20070707
  Serious: Yes (Death)
  Sender: FDA-Public Use
  Company Number: 2004UW13795

PATIENT
  Age: 68 Year
  Sex: Male
  Weight: 92.0802 kg

DRUGS (4)
  1. IRESSA [Suspect]
     Indication: NON-SMALL CELL LUNG CANCER
     Dosage: 250 MG PO
     Route: 048
     Dates: start: 20040604, end: 20040618
  2. M.V.I. [Concomitant]
  3. CORAL CALCIUM [Concomitant]
  4. OXYGEN [Concomitant]

REACTIONS (1)
  - INTERSTITIAL LUNG DISEASE [None]
